FAERS Safety Report 9353054 (Version 1)
Quarter: 2013Q2

REPORT INFORMATION
  Report Type: Spontaneous
  Country: US (occurrence: US)
  Receive Date: 20130618
  Receipt Date: 20130618
  Transmission Date: 20140414
  Serious: No
  Sender: FDA-Public Use
  Company Number: US-JNJFOC-20130513486

PATIENT
  Age: 28 Year
  Sex: Male
  Weight: 77.11 kg

DRUGS (4)
  1. INVEGA [Suspect]
     Indication: BIPOLAR DISORDER
     Route: 048
     Dates: start: 201101, end: 201212
  2. INVEGA [Suspect]
     Indication: BIPOLAR DISORDER
     Route: 048
     Dates: start: 201302
  3. INVEGA [Suspect]
     Indication: BIPOLAR DISORDER
     Route: 048
     Dates: start: 201212, end: 201302
  4. LITHIUM [Concomitant]
     Indication: BIPOLAR DISORDER
     Dosage: 300 MG DAILY
     Route: 048
     Dates: start: 201101

REACTIONS (1)
  - Drug ineffective [Unknown]
